FAERS Safety Report 4293463-6 (Version None)
Quarter: 2004Q1

REPORT INFORMATION
  Report Type: 
  Country: None (occurrence: None)
  Receive Date: 20040126
  Receipt Date: 20030929
  Transmission Date: 20041129
  Serious: No
  Sender: FDA-Public Use
  Company Number: USA030844398

PATIENT
  Age: 70 Year
  Sex: Male
  Weight: 73 kg

DRUGS (8)
  1. FORTEO [Suspect]
     Indication: OSTEOPOROSIS
     Dosage: 20 UG/DAY
     Dates: start: 20030601
  2. CALCIUM CARBONATE [Concomitant]
  3. TUMS (CALCIUM ARBONATE) [Concomitant]
  4. SYNTHROID [Concomitant]
  5. FOSAMAX [Concomitant]
  6. COUMADIN [Concomitant]
  7. TEMAZEPAM [Concomitant]
  8. LEVSIN (HYOSCYAMINE SULFATE) [Concomitant]

REACTIONS (2)
  - EPISTAXIS [None]
  - THYROID DISORDER [None]
